FAERS Safety Report 9339937 (Version 1)
Quarter: 2013Q2

REPORT INFORMATION
  Report Type: Spontaneous
  Country: GB (occurrence: None)
  Receive Date: 20130605
  Receipt Date: 20130605
  Transmission Date: 20140414
  Serious: Yes (Disabling)
  Sender: FDA-Public Use
  Company Number: GER/UKI/13/0029826

PATIENT
  Sex: Male

DRUGS (5)
  1. LAMOTRIGINE (LAMOTRIGINE) [Suspect]
     Indication: PRODUCT USED FOR UNKNOWN INDICATION
     Dates: end: 20130501
  2. DEPAKOTE (VALPROATE SEMISODIUM) [Suspect]
     Indication: PRODUCT USED FOR UNKNOWN INDICATION
  3. AMISULPRIDE (AMISULPRIDE) [Concomitant]
  4. MIRTAZAPINE (MIRTAZAPINE) [Concomitant]
  5. VENLAFAXINE (VENLAFAXINE) [Concomitant]

REACTIONS (5)
  - Chest pain [None]
  - Sensation of heaviness [None]
  - Palpitations [None]
  - Restlessness [None]
  - Rash [None]
